FAERS Safety Report 5051268-2 (Version None)
Quarter: 2006Q3

REPORT INFORMATION
  Report Type: 
  Country: None (occurrence: None)
  Receive Date: 20060714
  Receipt Date: 20060706
  Transmission Date: 20061208
  Serious: Yes (Other)
  Sender: FDA-Public Use
  Company Number: US-JNJFOC-20060702055

PATIENT
  Sex: Male
  Weight: 89.36 kg

DRUGS (2)
  1. DURAGESIC-100 [Suspect]
     Indication: PAIN
     Route: 062
  2. VICODIN [Concomitant]
     Indication: BREAKTHROUGH PAIN
     Dosage: 7.5 MG/750 MG, 1 IN 12 HOURS, AS NEEDED, ORAL
     Route: 048

REACTIONS (2)
  - FALL [None]
  - MUSCLE RUPTURE [None]
